FAERS Safety Report 17811267 (Version 1)
Quarter: 2020Q2

REPORT INFORMATION
  Report Type: Spontaneous
  Country: US (occurrence: US)
  Receive Date: 20200520
  Receipt Date: 20200520
  Transmission Date: 20200714
  Serious: Yes (Life-Threatening, Hospitalization)
  Sender: FDA-Public Use
  Company Number: None

PATIENT
  Age: 59 Year
  Sex: Male
  Weight: 71.67 kg

DRUGS (1)
  1. DOCETAXEL. [Suspect]
     Active Substance: DOCETAXEL

REACTIONS (5)
  - White blood cell count decreased [None]
  - SARS-CoV-2 test positive [None]
  - Bone marrow failure [None]
  - Neutropenia [None]
  - Pneumonitis [None]

NARRATIVE: CASE EVENT DATE: 20200508
